FAERS Safety Report 6967491-3 (Version None)
Quarter: 2010Q3

REPORT INFORMATION
  Report Type: 
  Country: None (occurrence: None)
  Receive Date: 20100823
  Receipt Date: 20100428
  Transmission Date: 20110219
  Serious: Yes (Other)
  Sender: FDA-Public Use
  Company Number: 011083

PATIENT
  Sex: Male
  Weight: 49.8 kg

DRUGS (4)
  1. CIMZIA [Suspect]
     Dosage: (SUBCUTANEOUS)
     Route: 058
     Dates: start: 20100413
  2. PREDNISONE [Concomitant]
  3. ALPRAZOLAM [Concomitant]
  4. VICODIN [Concomitant]

REACTIONS (2)
  - CONVULSION [None]
  - PANIC ATTACK [None]
